FAERS Safety Report 24029746 (Version 1)
Quarter: 2024Q2

REPORT INFORMATION
  Report Type: Report from Study
  Country: CA (occurrence: CA)
  Receive Date: 20240628
  Receipt Date: 20240628
  Transmission Date: 20240716
  Serious: Yes (Other)
  Sender: FDA-Public Use
  Company Number: CA-TAKEDA-2024TUS064503

PATIENT
  Sex: Male

DRUGS (3)
  1. VEDOLIZUMAB [Suspect]
     Active Substance: VEDOLIZUMAB
     Indication: Colitis ulcerative
     Dosage: 300 MILLIGRAM
     Route: 042
     Dates: start: 20210309
  2. ASACOL [Concomitant]
     Active Substance: MESALAMINE
     Dosage: UNK
     Dates: start: 2006
  3. CORTENEMA [Concomitant]
     Active Substance: HYDROCORTISONE
     Dosage: UNK
     Dates: start: 202002

REACTIONS (4)
  - Colitis ulcerative [Unknown]
  - Haematochezia [Unknown]
  - Defaecation urgency [Unknown]
  - Frequent bowel movements [Not Recovered/Not Resolved]
